FAERS Safety Report 22656489 (Version 4)
Quarter: 2023Q4

REPORT INFORMATION
  Report Type: Report from Study
  Country: FR (occurrence: FR)
  Receive Date: 20230629
  Receipt Date: 20231221
  Transmission Date: 20240109
  Serious: Yes (Hospitalization, Other)
  Sender: FDA-Public Use
  Company Number: FR-002147023-NVSC2023FR098552

PATIENT
  Sex: Male
  Weight: 89 kg

DRUGS (1)
  1. PLUVICTO [Suspect]
     Active Substance: LUTETIUM LU-177 VIPIVOTIDE TETRAXETAN
     Indication: Hormone-refractory prostate cancer
     Dosage: 7216 MBQ, ONCE/SINGLE (CYCLE 1)
     Route: 065
     Dates: start: 20230310, end: 20230310

REACTIONS (4)
  - Sepsis [Recovering/Resolving]
  - Metastases to spinal cord [Unknown]
  - Thrombocytopenia [Unknown]
  - Pain [Not Recovered/Not Resolved]

NARRATIVE: CASE EVENT DATE: 20230401
